FAERS Safety Report 11539148 (Version 1)
Quarter: 2015Q3

REPORT INFORMATION
  Report Type: Spontaneous
  Country: US (occurrence: None)
  Receive Date: 20150922
  Receipt Date: 20150922
  Transmission Date: 20151125
  Serious: Yes (Other)
  Sender: FDA-Public Use
  Company Number: None

PATIENT
  Age: 27 Year
  Sex: Female
  Weight: 78.9 kg

DRUGS (9)
  1. FENTANYL. [Concomitant]
     Active Substance: FENTANYL
  2. HYDROMORPHONE [Concomitant]
     Active Substance: HYDROMORPHONE
  3. MORPHNE SULFATE [Concomitant]
     Active Substance: MORPHINE SULFATE
  4. ONDANSETRON [Concomitant]
     Active Substance: ONDANSETRON
  5. CLINDAMYCIN [Concomitant]
     Active Substance: CLINDAMYCIN\CLINDAMYCIN PHOSPHATE
  6. GENTAMICIN. [Concomitant]
     Active Substance: GENTAMICIN
  7. BUPIVACAINE SPINAL BUPIVACAINE HCL0.75% HO SPIRA [Suspect]
     Active Substance: BUPIVACAINE
     Indication: SPINAL ANAESTHESIA
     Dosage: 1 ML ONCE EPIDURAL
     Route: 008
     Dates: start: 20150921, end: 20150921
  8. OXYTOCIN. [Concomitant]
     Active Substance: OXYTOCIN
  9. KETOROLAC TROMETHAMINE. [Concomitant]
     Active Substance: KETOROLAC TROMETHAMINE

REACTIONS (2)
  - Inadequate analgesia [None]
  - Product quality issue [None]

NARRATIVE: CASE EVENT DATE: 20150921
